FAERS Safety Report 26212675 (Version 1)
Quarter: 2025Q4

REPORT INFORMATION
  Report Type: Spontaneous
  Country: US (occurrence: None)
  Receive Date: 20251230
  Receipt Date: 20251230
  Transmission Date: 20260117
  Serious: Yes (Other)
  Sender: ENDO
  Company Number: US-ENDO USA, INC.-2025-002489

PATIENT
  Age: 90 Year
  Sex: Male

DRUGS (3)
  1. ADRENALIN [Suspect]
     Active Substance: EPINEPHRINE
     Indication: Bradycardia
     Dosage: UNK UNKNOWN, INFUSION
  2. DOPAMINE [Concomitant]
     Active Substance: DOPAMINE HYDROCHLORIDE
     Indication: Bradycardia
     Dosage: UNK UNKNOWN, UNKNOWN
     Route: 065
  3. ATROPINE [Concomitant]
     Active Substance: ATROPINE
     Indication: Bradycardia
     Dosage: UNK UNKNOWN, UNKNOWN
     Route: 065

REACTIONS (1)
  - Lactic acidosis [Recovering/Resolving]
